FAERS Safety Report 5736318-X (Version None)
Quarter: 2008Q2

REPORT INFORMATION
  Report Type: 
  Country: None (occurrence: None)
  Receive Date: 20080509
  Receipt Date: 20080509
  Transmission Date: 20081010
  Serious: Yes (Life-Threatening)
  Sender: FDA-Public Use
  Company Number: None

PATIENT
  Age: 78 Year
  Sex: Female
  Weight: 104.3273 kg

DRUGS (1)
  1. DIGITEK   0.125   ACTAVIS TOTOWA [Suspect]
     Indication: CARDIAC DISORDER
     Dosage: 1 TABLET ONCE DAILY
     Dates: start: 20011110, end: 20080503

REACTIONS (10)
  - ASTHENIA [None]
  - BALANCE DISORDER [None]
  - DYSPNOEA [None]
  - GAIT DISTURBANCE [None]
  - HEART RATE DECREASED [None]
  - HYPOTENSION [None]
  - ILL-DEFINED DISORDER [None]
  - INCONTINENCE [None]
  - NAUSEA [None]
  - PROTHROMBIN TIME PROLONGED [None]
